FAERS Safety Report 8377645-X (Version None)
Quarter: 2012Q2

REPORT INFORMATION
  Report Type: 
  Country: None (occurrence: None)
  Receive Date: 20120522
  Receipt Date: 20120508
  Transmission Date: 20120825
  Serious: Yes (Other)
  Sender: FDA-Public Use
  Company Number: US-WATSON-2012-08143

PATIENT
  Age: 46 Year
  Sex: Female

DRUGS (2)
  1. DEFEROXAMINE MESYLATE [Suspect]
     Dosage: UNK
     Route: 058
  2. DEFEROXAMINE MESYLATE [Suspect]
     Indication: HAEMOCHROMATOSIS
     Dosage: UNK
     Route: 030

REACTIONS (2)
  - RETINAL PIGMENT EPITHELIOPATHY [None]
  - MACULOPATHY [None]
